FAERS Safety Report 5490676-2 (Version None)
Quarter: 2007Q4

REPORT INFORMATION
  Report Type: 
  Country: None (occurrence: None)
  Receive Date: 20071019
  Receipt Date: 20071012
  Transmission Date: 20080405
  Serious: Yes (Other)
  Sender: FDA-Public Use
  Company Number: CA-ASTRAZENECA-2007UW24065

PATIENT
  Age: 42 Year
  Sex: Female

DRUGS (4)
  1. CRESTOR [Suspect]
     Route: 048
  2. ALTACE [Concomitant]
  3. HUMALOG [Concomitant]
  4. SYNTHROID [Concomitant]

REACTIONS (5)
  - ASTHENIA [None]
  - DYSPHONIA [None]
  - FACIAL PAIN [None]
  - GASTROINTESTINAL TRACT MUCOSAL DISCOLOURATION [None]
  - MYALGIA [None]
